FAERS Safety Report 8068053-X (Version None)
Quarter: 2012Q1

REPORT INFORMATION
  Report Type: 
  Country: None (occurrence: None)
  Receive Date: 20120124
  Receipt Date: 20110915
  Transmission Date: 20120608
  Serious: No
  Sender: FDA-Public Use
  Company Number: US-AMGEN-USASP2011047515

PATIENT
  Age: 68 Year
  Sex: Female

DRUGS (10)
  1. AZITHROMYCIN [Concomitant]
  2. CRESTOR [Concomitant]
  3. VITAMIN D [Concomitant]
     Indication: OSTEOPOROSIS POSTMENOPAUSAL
  4. NEXIUM [Concomitant]
  5. FOLIC ACID [Concomitant]
  6. PROLIA [Suspect]
     Indication: OSTEOPOROSIS POSTMENOPAUSAL
     Dosage: 60 MG, Q6MO
     Dates: start: 20110101
  7. ALBUTEROL [Concomitant]
  8. CYANOCOBALAMIN [Concomitant]
  9. LOTENSIN                           /00498401/ [Concomitant]
  10. ADVAIR DISKUS 100/50 [Concomitant]

REACTIONS (5)
  - HYPERHIDROSIS [None]
  - FEELING HOT [None]
  - FUNGAL INFECTION [None]
  - SPINAL DISORDER [None]
  - HYPERTENSION [None]
